FAERS Safety Report 10144511 (Version 2)
Quarter: 2018Q3

REPORT INFORMATION
  Report Type: Spontaneous
  Country: US (occurrence: US)
  Receive Date: 20140430
  Receipt Date: 20180928
  Transmission Date: 20181010
  Serious: No
  Sender: FDA-Public Use
  Company Number: US-SANOFI-AVENTIS-2013SA038478

PATIENT
  Sex: Female

DRUGS (1)
  1. LOVENOX [Suspect]
     Active Substance: ENOXAPARIN SODIUM
     Indication: ACCIDENTAL EXPOSURE TO PRODUCT
     Dosage: UNK UNK,1X
     Route: 065

REACTIONS (2)
  - Product use issue [Unknown]
  - Injury associated with device [Unknown]
